FAERS Safety Report 8445953-X (Version None)
Quarter: 2012Q2

REPORT INFORMATION
  Report Type: 
  Country: None (occurrence: None)
  Receive Date: 20120618
  Receipt Date: 20120612
  Transmission Date: 20120825
  Serious: Yes (Death)
  Sender: FDA-Public Use
  Company Number: US-ASTRAZENECA-2012SE39395

PATIENT
  Age: 81 Year
  Sex: Female

DRUGS (1)
  1. SYMBICORT [Suspect]
     Route: 055

REACTIONS (3)
  - RESPIRATORY FAILURE [None]
  - HYPOXIA [None]
  - CHRONIC OBSTRUCTIVE PULMONARY DISEASE [None]
